FAERS Safety Report 18272619 (Version 1)
Quarter: 2020Q3

REPORT INFORMATION
  Report Type: Spontaneous
  Country: PT (occurrence: PT)
  Receive Date: 20200916
  Receipt Date: 20200916
  Transmission Date: 20201103
  Serious: Yes (Hospitalization, Other)
  Sender: FDA-Public Use
  Company Number: PT-SA-2020SA234227

PATIENT

DRUGS (10)
  1. SULFAMETHOXAZOLE/TRIMETHOPRIM [Suspect]
     Active Substance: SULFAMETHOXAZOLE\TRIMETHOPRIM
     Indication: PROPHYLAXIS
     Dosage: 480 MG DAILY
     Dates: start: 2019, end: 201907
  2. TACROLIMUS. [Suspect]
     Active Substance: TACROLIMUS
     Dosage: DOSE ADJUSTED
     Dates: start: 201907
  3. PREDNISOLONE. [Suspect]
     Active Substance: PREDNISOLONE
     Dosage: DOSE ADJUSTED
     Route: 065
     Dates: start: 201907
  4. VALGANCICLOVIR HYDROCHLORIDE. [Suspect]
     Active Substance: VALGANCICLOVIR HYDROCHLORIDE
     Indication: CYTOMEGALOVIRUS INFECTION
  5. THYMOGLOBULIN [Suspect]
     Active Substance: LAPINE T-LYMPHOCYTE IMMUNE GLOBULIN
     Indication: IMMUNOSUPPRESSANT DRUG THERAPY
     Dosage: 12.1 MG/KG,(CUMULATIVE DOSE 970 MG)
     Route: 065
     Dates: start: 2019, end: 2019
  6. MYCOPHENOLIC ACID. [Suspect]
     Active Substance: MYCOPHENOLIC ACID
     Dosage: DOSE ADJUSTED
     Dates: start: 201907
  7. TACROLIMUS. [Suspect]
     Active Substance: TACROLIMUS
     Indication: IMMUNOSUPPRESSANT DRUG THERAPY
     Dosage: 4 MG+ 3.5 MG DAILY
     Dates: start: 2019, end: 201907
  8. PREDNISOLONE. [Suspect]
     Active Substance: PREDNISOLONE
     Indication: IMMUNOSUPPRESSANT DRUG THERAPY
     Dosage: 15 MG DAILY
     Route: 065
     Dates: start: 2019, end: 201907
  9. MYCOPHENOLIC ACID. [Suspect]
     Active Substance: MYCOPHENOLIC ACID
     Indication: IMMUNOSUPPRESSANT DRUG THERAPY
     Dosage: (540 MG + 360 MG DAILY), ONCE DAILY
     Dates: start: 2019, end: 201907
  10. VALGANCICLOVIR HYDROCHLORIDE. [Suspect]
     Active Substance: VALGANCICLOVIR HYDROCHLORIDE
     Indication: PROPHYLAXIS
     Dosage: 450 MG, QD
     Dates: start: 2019, end: 201907

REACTIONS (6)
  - Haematochezia [Recovering/Resolving]
  - Febrile neutropenia [Recovering/Resolving]
  - Diarrhoea haemorrhagic [Recovering/Resolving]
  - Pyrexia [Recovered/Resolved]
  - Neutropenic colitis [Recovering/Resolving]
  - Ileal ulcer [Recovering/Resolving]

NARRATIVE: CASE EVENT DATE: 2019
